FAERS Safety Report 13987368 (Version 1)
Quarter: 2017Q3

REPORT INFORMATION
  Report Type: Spontaneous
  Country: CN (occurrence: CN)
  Receive Date: 20170919
  Receipt Date: 20170919
  Transmission Date: 20171128
  Serious: Yes (Other)
  Sender: FDA-Public Use
  Company Number: CN-ASTRAZENECA-2017SE95076

PATIENT
  Age: 1143 Day
  Sex: Male
  Weight: 20 kg

DRUGS (12)
  1. BUDESONIDE. [Suspect]
     Active Substance: BUDESONIDE
     Indication: MYCOPLASMA INFECTION
     Route: 055
     Dates: start: 20170610, end: 20170611
  2. TERBUTALINE SULFATE. [Suspect]
     Active Substance: TERBUTALINE SULFATE
     Indication: MYCOPLASMA INFECTION
     Route: 055
     Dates: start: 20170610, end: 20170611
  3. MONTELUKAST SODIUM. [Suspect]
     Active Substance: MONTELUKAST SODIUM
     Indication: MYCOPLASMA INFECTION
     Route: 048
     Dates: start: 20170610, end: 20170611
  4. MONTELUKAST SODIUM. [Suspect]
     Active Substance: MONTELUKAST SODIUM
     Indication: BRONCHITIS
     Route: 048
     Dates: start: 20170610, end: 20170611
  5. CHINESE TRADITIONAL MEDICINE NOS [Suspect]
     Active Substance: UNSPECIFIED INGREDIENT
     Indication: BRONCHITIS
     Route: 048
     Dates: start: 20170608, end: 20170610
  6. CHINESE TRADITIONAL MEDICINE NOS [Suspect]
     Active Substance: UNSPECIFIED INGREDIENT
     Indication: MYCOPLASMA INFECTION
     Route: 048
     Dates: start: 20170608, end: 20170610
  7. DEXTROMETHORPHAN HYDROBROMIDE. [Suspect]
     Active Substance: DEXTROMETHORPHAN HYDROBROMIDE
     Indication: BRONCHITIS
     Route: 048
     Dates: start: 20170610, end: 20170611
  8. DEXTROMETHORPHAN HYDROBROMIDE. [Suspect]
     Active Substance: DEXTROMETHORPHAN HYDROBROMIDE
     Indication: MYCOPLASMA INFECTION
     Route: 048
     Dates: start: 20170610, end: 20170611
  9. TERBUTALINE SULFATE. [Suspect]
     Active Substance: TERBUTALINE SULFATE
     Indication: BRONCHITIS
     Route: 055
     Dates: start: 20170610, end: 20170611
  10. BUDESONIDE. [Suspect]
     Active Substance: BUDESONIDE
     Indication: BRONCHITIS
     Route: 055
     Dates: start: 20170610, end: 20170611
  11. CHINESE TRADITIONAL MEDICINE NOS [Suspect]
     Active Substance: UNSPECIFIED INGREDIENT
     Indication: BRONCHITIS
     Dosage: 2 POUCH THREE TIMES DAILY
     Route: 048
     Dates: start: 20170608, end: 20170610
  12. CHINESE TRADITIONAL MEDICINE NOS [Suspect]
     Active Substance: UNSPECIFIED INGREDIENT
     Indication: MYCOPLASMA INFECTION
     Dosage: 2 POUCH THREE TIMES DAILY
     Route: 048
     Dates: start: 20170608, end: 20170610

REACTIONS (3)
  - Pruritus [Recovering/Resolving]
  - Rash [Recovering/Resolving]
  - Flushing [Recovering/Resolving]

NARRATIVE: CASE EVENT DATE: 20170611
